FAERS Safety Report 19423065 (Version 1)
Quarter: 2021Q2

REPORT INFORMATION
  Report Type: Spontaneous
  Country: US (occurrence: US)
  Receive Date: 20210616
  Receipt Date: 20210616
  Transmission Date: 20210717
  Serious: Yes (Death)
  Sender: FDA-Public Use
  Company Number: None

PATIENT
  Age: 53 Year
  Sex: Female
  Weight: 102.97 kg

DRUGS (2)
  1. REMDESIVIR 100MG [Suspect]
     Active Substance: REMDESIVIR
     Dosage: ?          OTHER DOSE:200MG X1, 100MG;OTHER ROUTE:IVPB?
     Route: 042
     Dates: start: 20210403, end: 20210607
  2. ACTEMRA [Suspect]
     Active Substance: TOCILIZUMAB
     Route: 042
     Dates: start: 20210404, end: 20210404

REACTIONS (1)
  - Death [None]

NARRATIVE: CASE EVENT DATE: 20210512
